FAERS Safety Report 5346092-7 (Version None)
Quarter: 2007Q2

REPORT INFORMATION
  Report Type: 
  Country: None (occurrence: None)
  Receive Date: 20070430
  Receipt Date: 20070330
  Transmission Date: 20071010
  Serious: No
  Sender: FDA-Public Use
  Company Number: 262364

PATIENT
  Age: 52 Year
  Sex: Male
  Weight: 129.3 kg

DRUGS (11)
  1. LEVEMIR [Suspect]
     Indication: DIABETES MELLITUS
     Dosage: 210 IU, QD, SUBCUTANEOUS
     Route: 058
     Dates: start: 20060117, end: 20060920
  2. NOVOLOG [Suspect]
     Indication: INSULIN-REQUIRING TYPE II DIABETES MELLITUS
     Dosage: SEE IMAGE
     Route: 058
     Dates: end: 20060920
  3. NOVOLOG [Suspect]
     Indication: INSULIN-REQUIRING TYPE II DIABETES MELLITUS
     Dosage: SEE IMAGE
     Route: 058
     Dates: start: 20060920, end: 20070219
  4. NOVOLOG [Suspect]
     Indication: INSULIN-REQUIRING TYPE II DIABETES MELLITUS
     Dosage: SEE IMAGE
     Route: 058
     Dates: start: 20070219
  5. HUMALOG MIX 75/25 [Suspect]
     Indication: DIABETES MELLITUS
     Dosage: 132, SUBCUTANEOUS
     Route: 058
  6. LANTUS [Suspect]
     Indication: DIABETES MELLITUS
     Dosage: 60 IU, BID, SUBCUTANEOUS
     Route: 058
     Dates: start: 20061017
  7. LIPITOR [Concomitant]
  8. TRICOR [Concomitant]
  9. ACCUPRIL [Concomitant]
  10. ZIAC [Concomitant]
  11. ASPIRIN [Concomitant]

REACTIONS (2)
  - GLYCOSYLATED HAEMOGLOBIN INCREASED [None]
  - THERAPEUTIC RESPONSE DECREASED [None]
